FAERS Safety Report 6615478-2 (Version None)
Quarter: 2010Q1

REPORT INFORMATION
  Report Type: 
  Country: None (occurrence: None)
  Receive Date: 20100305
  Receipt Date: 20100225
  Transmission Date: 20100710
  Serious: Yes (Death)
  Sender: FDA-Public Use
  Company Number: US-ROCHE-678608

PATIENT
  Sex: Male

DRUGS (2)
  1. XELODA [Suspect]
     Indication: DRUG USE FOR UNKNOWN INDICATION
     Route: 048
     Dates: start: 20090201, end: 20090709
  2. OXALIPLATIN [Concomitant]
     Dates: start: 20090301

REACTIONS (2)
  - DISEASE PROGRESSION [None]
  - RECTAL CANCER [None]
